FAERS Safety Report 6254812-2 (Version None)
Quarter: 2009Q3

REPORT INFORMATION
  Report Type: 
  Country: None (occurrence: None)
  Receive Date: 20090702
  Receipt Date: 20090623
  Transmission Date: 20100115
  Serious: Yes (Disabling, Other)
  Sender: FDA-Public Use
  Company Number: DE-PFIZER INC-2009232689

PATIENT
  Age: 85 Year

DRUGS (12)
  1. HEPARIN SODIUM [Suspect]
     Indication: ANTICOAGULANT THERAPY
  2. DIPIDOLOR [Concomitant]
  3. NOREPINEPHRINE BITARTRATE [Concomitant]
  4. ATOSIL [Concomitant]
  5. METRONIDAZOLE [Concomitant]
  6. TAVANIC [Concomitant]
  7. METHOCLOPRAMIDE [Concomitant]
  8. NEXIUM [Concomitant]
  9. FLUCONAZOLE [Concomitant]
  10. INSULIN [Concomitant]
  11. LASIX [Concomitant]
  12. NOVALGIN [Suspect]

REACTIONS (3)
  - DEEP VEIN THROMBOSIS [None]
  - HEPARIN-INDUCED THROMBOCYTOPENIA [None]
  - MULTI-ORGAN FAILURE [None]
